FAERS Safety Report 9160907 (Version 2)
Quarter: 2013Q2

REPORT INFORMATION
  Report Type: Spontaneous
  Country: US (occurrence: US)
  Receive Date: 20130313
  Receipt Date: 20130606
  Transmission Date: 20140414
  Serious: Yes (Other)
  Sender: FDA-Public Use
  Company Number: US-PFIZER INC-2013082690

PATIENT
  Sex: Female

DRUGS (3)
  1. LIPITOR [Suspect]
     Dosage: UNK
     Route: 048
  2. ZOCOR [Suspect]
     Dosage: UNK
     Route: 048
  3. VIOXX [Suspect]
     Dosage: UNK
     Route: 048

REACTIONS (8)
  - Drug hypersensitivity [Unknown]
  - Chest discomfort [Unknown]
  - Throat tightness [Unknown]
  - Swollen tongue [Unknown]
  - Pharyngeal oedema [Unknown]
  - Dysphagia [Unknown]
  - Muscle spasms [Unknown]
  - Sensory loss [Unknown]
